FAERS Safety Report 5960453-4 (Version None)
Quarter: 2008Q4

REPORT INFORMATION
  Report Type: 
  Country: None (occurrence: None)
  Receive Date: 20081120
  Receipt Date: 20081114
  Transmission Date: 20090506
  Serious: Yes (Hospitalization, Disabling)
  Sender: FDA-Public Use
  Company Number: US-B.I. PHARMACEUTICALS,INC./RIDGEFIELD-2008-BP-17342BP

PATIENT
  Age: 85 Year
  Sex: Female

DRUGS (2)
  1. CATAPRES-TTS-1 [Suspect]
     Indication: HYPERTENSION
     Dosage: .1MG
     Route: 061
     Dates: start: 19880101, end: 19980101
  2. CATAPRES-TTS-1 [Suspect]
     Dosage: .3MG
     Route: 061
     Dates: start: 19980101

REACTIONS (7)
  - BLINDNESS UNILATERAL [None]
  - BLOOD PRESSURE INCREASED [None]
  - CEREBROVASCULAR ACCIDENT [None]
  - COUGH [None]
  - OEDEMA [None]
  - RENAL FAILURE [None]
  - VASCULAR DEMENTIA [None]
